FAERS Safety Report 8805960 (Version 1)
Quarter: 2012Q4

REPORT INFORMATION
  Report Type: Spontaneous
  Country: US (occurrence: None)
  Receive Date: 20120917
  Receipt Date: 20120917
  Transmission Date: 20130627
  Serious: Yes (Hospitalization, Other)
  Sender: FDA-Public Use
  Company Number: 2012P1056295

PATIENT
  Age: 23 Year
  Sex: Female
  Weight: 64 kg

DRUGS (2)
  1. PHENOBARBITAL [Suspect]
     Indication: SEIZURES
  2. PHENYTOIN [Suspect]
     Indication: SEIZURES

REACTIONS (7)
  - Grand mal convulsion [None]
  - Communication disorder [None]
  - Chvostek^s sign [None]
  - Trousseau^s sign [None]
  - Electrocardiogram QT prolonged [None]
  - Cerebral calcification [None]
  - Hypocalcaemia [None]
